FAERS Safety Report 12162891 (Version 2)
Quarter: 2016Q2

REPORT INFORMATION
  Report Type: Spontaneous
  Country: US (occurrence: US)
  Receive Date: 20160309
  Receipt Date: 20160409
  Transmission Date: 20160815
  Serious: Yes (Hospitalization, Other)
  Sender: FDA-Public Use
  Company Number: US-UCBSA-2016008358

PATIENT
  Age: 21 Year
  Sex: Female
  Weight: 73 kg

DRUGS (9)
  1. ESLICARBAZEPINE [Concomitant]
     Active Substance: ESLICARBAZEPINE
     Indication: PRODUCT USED FOR UNKNOWN INDICATION
     Dosage: 300 MG DAILY
     Dates: start: 2015, end: 2015
  2. TEGRETOL [Concomitant]
     Active Substance: CARBAMAZEPINE
     Indication: PRODUCT USED FOR UNKNOWN INDICATION
     Dosage: 600 MG, ONCE DAILY (QD)
     Dates: start: 2015
  3. LAMOTRIGINE. [Suspect]
     Active Substance: LAMOTRIGINE
     Indication: SEIZURE
     Dosage: 250 UNSPECIFED UNIT, DAILY
     Dates: start: 201602
  4. PROZAC [Suspect]
     Active Substance: FLUOXETINE HYDROCHLORIDE
     Indication: ANXIETY
     Dosage: 10 MG, ONCE DAILY (QD)
     Dates: start: 201503
  5. ESLICARBAZEPINE [Concomitant]
     Active Substance: ESLICARBAZEPINE
     Dosage: 600 MG DAILY
     Dates: start: 2015
  6. KEPPRA [Suspect]
     Active Substance: LEVETIRACETAM
     Indication: EPILEPSY
     Dosage: 1500 MG, ONCE DAILY (QD), QHS
     Dates: start: 200209, end: 201603
  7. VIMPAT [Suspect]
     Active Substance: LACOSAMIDE
     Indication: EPILEPSY
     Dosage: 50 MG, ONCE DAILY (QD)
     Dates: start: 201508
  8. CARBAMAZEPINE. [Concomitant]
     Active Substance: CARBAMAZEPINE
     Indication: PRODUCT USED FOR UNKNOWN INDICATION
     Dosage: UNK
  9. TEGRETOL [Concomitant]
     Active Substance: CARBAMAZEPINE
     Dosage: 400 MG, ONCE DAILY (QD)

REACTIONS (13)
  - Anxiety [Unknown]
  - Depression [Unknown]
  - Parosmia [Unknown]
  - Seizure [Recovering/Resolving]
  - Cranial nerve disorder [Unknown]
  - Myoclonus [Not Recovered/Not Resolved]
  - Inappropriate schedule of drug administration [Unknown]
  - Fatigue [Recovering/Resolving]
  - Somnolence [Unknown]
  - Schwannoma [Unknown]
  - Tongue biting [Unknown]
  - Nausea [Unknown]
  - Pituitary tumour [Unknown]

NARRATIVE: CASE EVENT DATE: 200209
